FAERS Safety Report 16661270 (Version 1)
Quarter: 2019Q3

REPORT INFORMATION
  Report Type: Spontaneous
  Country: US (occurrence: US)
  Receive Date: 20190802
  Receipt Date: 20190802
  Transmission Date: 20191004
  Serious: Yes (Other)
  Sender: FDA-Public Use
  Company Number: US-ENDO PHARMACEUTICALS INC-2018-043225

PATIENT
  Age: 70 Year
  Sex: Male
  Weight: 99.2 kg

DRUGS (2)
  1. TESTOPEL [Suspect]
     Active Substance: TESTOSTERONE
     Indication: BLOOD TESTOSTERONE DECREASED
     Dosage: UNK, UNKNOWN, UNKNOWN
     Route: 058
     Dates: start: 20181115
  2. TESTOPEL [Suspect]
     Active Substance: TESTOSTERONE
     Dosage: UNK, UNKNOWN, UNKNOWN
     Route: 058
     Dates: start: 2016

REACTIONS (3)
  - Implant site infection [Unknown]
  - Wrong technique in product usage process [Unknown]
  - Product container issue [Unknown]

NARRATIVE: CASE EVENT DATE: 20181115
